APPROVED DRUG PRODUCT: ISENTRESS
Active Ingredient: RALTEGRAVIR POTASSIUM
Strength: EQ 400MG BASE
Dosage Form/Route: TABLET;ORAL
Application: N022145 | Product #001
Applicant: MERCK SHARP AND DOHME LLC A SUB OF MERCK AND CO INC
Approved: Oct 12, 2007 | RLD: Yes | RS: Yes | Type: RX

PATENTS:
Patent 7754731 | Expires: Mar 11, 2029
Patent 8852632 | Expires: Jan 28, 2028
Patent 8771733 | Expires: Jun 2, 2030
Patent 7754731*PED | Expires: Sep 11, 2029